FAERS Safety Report 5416790-5 (Version None)
Quarter: 2007Q3

REPORT INFORMATION
  Report Type: 
  Country: None (occurrence: None)
  Receive Date: 20070815
  Receipt Date: 20070815
  Transmission Date: 20080115
  Serious: Yes (Other)
  Sender: FDA-Public Use
  Company Number: None

PATIENT
  Sex: Female
  Weight: 83.9154 kg

DRUGS (1)
  1. CHANTIX [Suspect]
     Indication: SMOKING CESSATION THERAPY
     Dosage: ONE TO TWO TABLETS FOR 12 WEEK TWICE DAILY PO
     Route: 048
     Dates: start: 20070601, end: 20070801

REACTIONS (10)
  - ABNORMAL DREAMS [None]
  - CONSTIPATION [None]
  - FLATULENCE [None]
  - GINGIVAL BLEEDING [None]
  - GINGIVAL SWELLING [None]
  - HEADACHE [None]
  - INSOMNIA [None]
  - IRRITABILITY [None]
  - JOINT STIFFNESS [None]
  - MENORRHAGIA [None]
